FAERS Safety Report 10058444 (Version 2)
Quarter: 2014Q2

REPORT INFORMATION
  Report Type: Report from Study
  Country: US (occurrence: US)
  Receive Date: 20140404
  Receipt Date: 20140423
  Transmission Date: 20141212
  Serious: Yes (Hospitalization)
  Sender: FDA-Public Use
  Company Number: US-B.I. PHARMACEUTICALS,INC./RIDGEFIELD-2014-BI-13590BI

PATIENT
  Age: 94 Year
  Sex: Female
  Weight: 68.8 kg

DRUGS (16)
  1. DABIGATRAN [Suspect]
     Indication: ATRIAL FIBRILLATION
     Dosage: 300 MG
     Route: 048
     Dates: start: 201107, end: 20120627
  2. LIPITOR [Concomitant]
     Indication: BLOOD CHOLESTEROL INCREASED
     Dosage: 10 MG
     Route: 048
     Dates: start: 20110707
  3. CRANBERRY [Concomitant]
     Indication: URINARY TRACT INFECTION
     Dosage: 900 MG
     Route: 048
  4. CARDIZEM [Concomitant]
     Indication: HYPERTENSION
     Dosage: 90 MG
     Route: 048
  5. CYMBALTA [Concomitant]
     Indication: OSTEOARTHRITIS
     Dosage: 120 MG
     Route: 048
  6. VICODIN [Concomitant]
     Indication: SPINAL COLUMN STENOSIS
     Dosage: 5-500 MG
     Route: 048
  7. VICODIN [Concomitant]
     Indication: OSTEOARTHRITIS
  8. ARTIFICIAL TEARS OP [Concomitant]
     Indication: DRY EYE
     Dosage: DROPS
     Route: 050
  9. LIDODERM [Concomitant]
     Indication: SPINAL COLUMN STENOSIS
     Dosage: FORM PATCH, DOSE 5 PERCENT.
     Route: 061
  10. LIDODERM [Concomitant]
     Indication: OSTEOARTHRITIS
  11. TOPROL XL [Concomitant]
     Indication: HYPERTENSION
     Dosage: 50 MG
     Route: 048
  12. MULTIVITAMIN [Concomitant]
     Indication: PROPHYLAXIS
     Route: 048
  13. MIRALAX [Concomitant]
     Indication: CONSTIPATION
     Dosage: FORM PACKET, DOSE 17G QAD.
     Route: 048
  14. RISPERDAL [Concomitant]
     Indication: PSYCHOTIC DISORDER
     Dosage: 0.25 MG
     Route: 048
     Dates: start: 20110717
  15. ULTRAM [Concomitant]
     Indication: SPINAL COLUMN STENOSIS
     Dosage: 25 MG
     Route: 048
  16. ULTRAM [Concomitant]
     Indication: OSTEOARTHRITIS

REACTIONS (6)
  - Haematocrit decreased [Recovered/Resolved]
  - Haemoglobin decreased [Recovered/Resolved]
  - Hyperhidrosis [Recovered/Resolved]
  - Dyspnoea [Recovered/Resolved]
  - Upper gastrointestinal haemorrhage [Recovered/Resolved]
  - Leukocytosis [Recovered/Resolved]
